FAERS Safety Report 18463924 (Version 1)
Quarter: 2020Q4

REPORT INFORMATION
  Report Type: Spontaneous
  Country: US (occurrence: US)
  Receive Date: 20201104
  Receipt Date: 20201104
  Transmission Date: 20210114
  Serious: Yes (Other)
  Sender: FDA-Public Use
  Company Number: US-TAKEDA-2020TUS045846

PATIENT
  Age: 69 Year
  Sex: Male

DRUGS (1)
  1. ENTYVIO [Suspect]
     Active Substance: VEDOLIZUMAB
     Indication: IRRITABLE BOWEL SYNDROME
     Dosage: 300 MILLIGRAM
     Route: 042
     Dates: start: 2018

REACTIONS (1)
  - Oesophageal carcinoma [Unknown]
